FAERS Safety Report 16015254 (Version 4)
Quarter: 2019Q3

REPORT INFORMATION
  Report Type: Spontaneous
  Country: US (occurrence: US)
  Receive Date: 20190228
  Receipt Date: 20190917
  Transmission Date: 20191004
  Serious: Yes (Hospitalization)
  Sender: FDA-Public Use
  Company Number: US-B.I. PHARMACEUTICALS,INC./RIDGEFIELD-2019-BI-007983

PATIENT
  Sex: Female

DRUGS (23)
  1. SPIRIVA [Suspect]
     Active Substance: TIOTROPIUM BROMIDE MONOHYDRATE
     Indication: PRODUCT USED FOR UNKNOWN INDICATION
     Route: 055
     Dates: end: 20190731
  2. FLONASE [Concomitant]
     Active Substance: FLUTICASONE PROPIONATE
     Indication: PRODUCT USED FOR UNKNOWN INDICATION
     Dosage: FREQUENCY TEXT: APPLY 2 SPRAYS TO EACH NOSTRIL DAILY
     Dates: start: 20160916
  3. NORVASC [Concomitant]
     Active Substance: AMLODIPINE BESYLATE
     Indication: PRODUCT USED FOR UNKNOWN INDICATION
     Dosage: FREQUENCY TEXT : TAKE 1 TAB BY MOUTH DAILY
     Route: 048
     Dates: start: 20190417
  4. VITAMIN B12 [Concomitant]
     Active Substance: CYANOCOBALAMIN
     Indication: PRODUCT USED FOR UNKNOWN INDICATION
     Dosage: FREQUENCY TEXT: TAKE 1,000 MCG BY MOUTH DAILY
     Route: 048
  5. DEXILANT [Concomitant]
     Active Substance: DEXLANSOPRAZOLE
     Indication: PRODUCT USED FOR UNKNOWN INDICATION
     Dosage: FREQUENCY TEXT: TAKE 1 CAP BY MOUTH DAILY
     Route: 048
     Dates: start: 20190619
  6. COLACE [Concomitant]
     Active Substance: DOCUSATE SODIUM
     Indication: PRODUCT USED FOR UNKNOWN INDICATION
     Route: 048
  7. TYLENOL [Concomitant]
     Active Substance: ACETAMINOPHEN
     Indication: PAIN
     Dosage: TAKE 2 TABS BY MOUTH EVERY 6 (SIX) HOURS AS NEEDED FOR PAIN
     Route: 048
     Dates: start: 20160212
  8. CALCIUM 600+VITAMIN D3 400 [Concomitant]
     Indication: PRODUCT USED FOR UNKNOWN INDICATION
     Dosage: FORM STRENGTH: 600 MG/400 UNIT?FREQUENCY TEXT: TAKE TWO TABLETS DAILY WITH DAIRY
     Route: 065
     Dates: start: 20190220
  9. COREG [Concomitant]
     Active Substance: CARVEDILOL
     Indication: PRODUCT USED FOR UNKNOWN INDICATION
     Dosage: FREQUENCY TEXT: TAKE 1 TABLET BY MOUTH TWICE DAILY WITH MEALS
     Route: 048
     Dates: start: 20190819
  10. FOSAMAX [Concomitant]
     Active Substance: ALENDRONATE SODIUM
     Indication: PRODUCT USED FOR UNKNOWN INDICATION
     Dosage: FREQUENCY TEXT: TAKE 1 TABLET BY MOUTH EVERY 7 DAYS
     Route: 048
     Dates: start: 20190729
  11. ATIVAN [Concomitant]
     Active Substance: LORAZEPAM
     Indication: PRODUCT USED FOR UNKNOWN INDICATION
     Route: 048
     Dates: start: 20190716
  12. REMERON [Concomitant]
     Active Substance: MIRTAZAPINE
     Indication: PRODUCT USED FOR UNKNOWN INDICATION
     Dosage: FREQUENCY TEXT: TAKE 1 TABLET BY MOUTH ONCE DAILY AT BEDTIME
     Route: 048
     Dates: start: 20190626
  13. TYLENOL ARTHRITIS PAIN [Concomitant]
     Active Substance: ACETAMINOPHEN
     Indication: ARTHRALGIA
     Dosage: TAKE 1,300 MG BY MOUTH 2 (TWO) TIMES DAILY
     Route: 048
  14. MUCINEX [Concomitant]
     Active Substance: GUAIFENESIN
     Indication: HYPERSENSITIVITY
     Dosage: FREQUENCY TEXT: TAKE 600 MG BY MOUTH AS NEEDED (ALLERGIES)
     Route: 048
  15. COZAAR [Concomitant]
     Active Substance: LOSARTAN POTASSIUM
     Indication: PRODUCT USED FOR UNKNOWN INDICATION
     Dosage: FREQUENCY TEXT: TAKE 1 TAB BY MOUTH DAILY
     Route: 048
     Dates: start: 20190417
  16. CYMBALTA [Concomitant]
     Active Substance: DULOXETINE HYDROCHLORIDE
     Indication: PRODUCT USED FOR UNKNOWN INDICATION
     Dosage: FORM OF ADMIN: DELAYED-RELEASE CAPSULE?FREQUENCY TEXT: TAKE 1 CAPSULE BY MOUTH DAILY
     Route: 048
     Dates: start: 20190613
  17. PROAIR HFA [Concomitant]
     Active Substance: ALBUTEROL SULFATE
     Indication: PRODUCT USED FOR UNKNOWN INDICATION
     Dosage: FORM STRENGTH: 90 MCG/ACTUATION FREQUENCY : INHALE 2 PUFFS AS DIRECTED EVERY 6 (SIX) HOURS AS NEEDED
     Route: 055
     Dates: start: 20190220
  18. LEXAPRO [Concomitant]
     Active Substance: ESCITALOPRAM OXALATE
     Indication: PRODUCT USED FOR UNKNOWN INDICATION
     Dosage: FREQUENCY TEXT: TAKE 1 TAB BY MOUTH DAILY
     Route: 048
     Dates: start: 20190730
  19. ADVAIR HFA [Concomitant]
     Active Substance: FLUTICASONE PROPIONATE\SALMETEROL XINAFOATE
     Indication: PRODUCT USED FOR UNKNOWN INDICATION
     Dosage: STRENGTH: 250-50 MCG/DOSE INHALER FREQUENCY: INHALE 1 PUFF AS DIRECTED EVERY 12 HOURS AS DIRECTED
     Route: 055
     Dates: start: 20181112
  20. MELATONIN [CALCIUM;MELATONIN;PYRIDOXINE HYDROCHLORIDE] [Concomitant]
     Indication: PRODUCT USED FOR UNKNOWN INDICATION
     Dosage: FREQUENCY TEXT: TAKE 1 TAB BY MOUTH NIGHTLY
     Route: 048
  21. MIRALAX [Concomitant]
     Active Substance: POLYETHYLENE GLYCOL 3350
     Indication: PRODUCT USED FOR UNKNOWN INDICATION
     Dosage: FORM STRENGTH: 17 GRAM/DOSE POWDER
     Route: 048
  22. POTASSIUM CHLORIDE. [Concomitant]
     Active Substance: POTASSIUM CHLORIDE
     Indication: PRODUCT USED FOR UNKNOWN INDICATION
     Dosage: FREQUENCY TEXT: TAKE 1 TAB BY MOUTH DAILY WITH DINNER
     Route: 048
     Dates: start: 20190417
  23. ZOCOR [Concomitant]
     Active Substance: SIMVASTATIN
     Indication: PRODUCT USED FOR UNKNOWN INDICATION
     Dosage: FREQUENCY TEXT: TAKE 1 TABLET BY MOUTH EVERY EVENING
     Route: 048
     Dates: start: 20190819

REACTIONS (1)
  - Pneumonia [Unknown]
